FAERS Safety Report 16896706 (Version 3)
Quarter: 2020Q1

REPORT INFORMATION
  Report Type: Spontaneous
  Country: RO (occurrence: RO)
  Receive Date: 20191008
  Receipt Date: 20200102
  Transmission Date: 20200409
  Serious: Yes (Life-Threatening, Hospitalization, Other)
  Sender: FDA-Public Use
  Company Number: RO-BEH-2019107767

PATIENT
  Age: 38 Year
  Sex: Female

DRUGS (7)
  1. RESPREEZA [Suspect]
     Active Substance: .ALPHA.1-PROTEINASE INHIBITOR HUMAN
     Indication: ALPHA-1 ANTI-TRYPSIN DEFICIENCY
     Dosage: 40 GRAM, TOT
     Route: 065
  2. PROLASTIN [Concomitant]
     Active Substance: .ALPHA.1-PROTEINASE INHIBITOR HUMAN
     Dosage: UNK
  3. RESPREEZA [Suspect]
     Active Substance: .ALPHA.1-PROTEINASE INHIBITOR HUMAN
     Indication: ORAL SUBMUCOSAL FIBROSIS
     Dosage: UNK
     Route: 065
  4. RESPREEZA [Suspect]
     Active Substance: .ALPHA.1-PROTEINASE INHIBITOR HUMAN
     Indication: MOUTH ULCERATION
     Dosage: UNK
     Route: 065
  5. RESPREEZA [Suspect]
     Active Substance: .ALPHA.1-PROTEINASE INHIBITOR HUMAN
     Indication: PERIODONTAL DESTRUCTION
     Dosage: 120 MILLIGRAM/KILOGRAM
     Route: 065
  6. RESPREEZA [Suspect]
     Active Substance: .ALPHA.1-PROTEINASE INHIBITOR HUMAN
     Indication: PANNICULITIS
  7. RESPREEZA [Suspect]
     Active Substance: .ALPHA.1-PROTEINASE INHIBITOR HUMAN
     Indication: MULTIPLE ALLERGIES

REACTIONS (12)
  - Ill-defined disorder [Recovered/Resolved]
  - Blood loss anaemia [Unknown]
  - Postoperative wound complication [Recovered/Resolved]
  - Alpha-1 anti-trypsin deficiency [Unknown]
  - Subcutaneous emphysema [Unknown]
  - Therapy cessation [Recovered/Resolved]
  - No adverse event [Unknown]
  - Inability to afford medication [Recovered/Resolved]
  - Impaired healing [Recovered/Resolved]
  - Condition aggravated [Recovered/Resolved]
  - Ulcer haemorrhage [Unknown]
  - Product use in unapproved indication [Unknown]

NARRATIVE: CASE EVENT DATE: 2018
